FAERS Safety Report 20876495 (Version 1)
Quarter: 2022Q2

REPORT INFORMATION
  Report Type: Spontaneous
  Country: US (occurrence: None)
  Receive Date: 20220525
  Receipt Date: 20220525
  Transmission Date: 20220721
  Serious: No
  Sender: FDA-Public Use
  Company Number: None

PATIENT
  Age: 58 Year
  Sex: Male
  Weight: 79.47 kg

DRUGS (8)
  1. ZYNLONTA [Suspect]
     Active Substance: LONCASTUXIMAB TESIRINE-LPYL
     Indication: Breast cancer female
     Dosage: 11.9MG  Q21DAYS IV?
     Route: 042
  2. BACTRIM DA [Concomitant]
  3. DEXAMETHASONE [Concomitant]
     Active Substance: DEXAMETHASONE
  4. GLIPIZIDE [Concomitant]
     Active Substance: GLIPIZIDE
  5. LISINOPRIL [Concomitant]
     Active Substance: LISINOPRIL
  6. NORVASC [Concomitant]
     Active Substance: AMLODIPINE BESYLATE
  7. ONDANSETRON [Concomitant]
     Active Substance: ONDANSETRON
  8. SPIRONOLACTONE [Concomitant]
     Active Substance: SPIRONOLACTONE

REACTIONS (1)
  - Drug intolerance [None]
